FAERS Safety Report 10110200 (Version 1)
Quarter: 2014Q2

REPORT INFORMATION
  Report Type: Report from Study
  Country: JP (occurrence: JP)
  Receive Date: 20140425
  Receipt Date: 20140425
  Transmission Date: 20141212
  Serious: Yes (Death, Other)
  Sender: FDA-Public Use
  Company Number: JP-SA-2014SA053352

PATIENT
  Age: 63 Year
  Sex: Female

DRUGS (10)
  1. FLUDARABINE PHOSPHATE [Suspect]
     Indication: BONE MARROW CONDITIONING REGIMEN
     Dosage: ON DAYS -6 TO -2.
     Route: 065
  2. MELPHALAN [Suspect]
     Indication: BONE MARROW CONDITIONING REGIMEN
     Dosage: ON DAYS -3 AND -2 .
     Route: 065
  3. FILGRASTIM [Suspect]
     Indication: BONE MARROW CONDITIONING REGIMEN
     Route: 065
  4. CYTARABINE [Suspect]
     Indication: BONE MARROW CONDITIONING REGIMEN
     Dosage: EVERY 12 HOUR, ON DAYS -6 TO -3.
     Route: 065
  5. THERAPEUTIC RADIOPHARMACEUTICALS [Suspect]
     Indication: BONE MARROW CONDITIONING REGIMEN
     Dosage: 4 GY IN 2 FRACTIONS
     Route: 065
  6. LEVOFLOXACIN [Concomitant]
     Indication: INFECTION PROPHYLAXIS
  7. VANCOMYCIN [Concomitant]
     Indication: INFECTION PROPHYLAXIS
     Route: 048
  8. MICAFUNGIN [Concomitant]
     Indication: INFECTION PROPHYLAXIS
     Route: 042
  9. TACROLIMUS [Concomitant]
     Indication: PROPHYLAXIS AGAINST GRAFT VERSUS HOST DISEASE
     Dosage: INFUSION
  10. ACYCLOVIR [Concomitant]
     Indication: ANTIVIRAL PROPHYLAXIS

REACTIONS (4)
  - Pulmonary haemorrhage [Unknown]
  - Mycobacterial infection [Fatal]
  - Febrile neutropenia [Unknown]
  - Gastroenteritis [Unknown]
